FAERS Safety Report 19833198 (Version 1)
Quarter: 2021Q3

REPORT INFORMATION
  Report Type: Spontaneous
  Country: DE (occurrence: DE)
  Receive Date: 20210915
  Receipt Date: 20210915
  Transmission Date: 20211014
  Serious: Yes (Hospitalization)
  Sender: FDA-Public Use
  Company Number: DE-ADDMEDICA-2021000072

PATIENT
  Age: 83 Year
  Sex: Male
  Weight: 50 kg

DRUGS (3)
  1. ALLOPURINOL. [Concomitant]
     Active Substance: ALLOPURINOL
     Dosage: 150 MG, 0?0?1?0
     Route: 065
  2. HYDROXYCARBAMIDE [Suspect]
     Active Substance: HYDROXYUREA
     Dosage: SCHEME
     Route: 065
  3. PONATINIB [Suspect]
     Active Substance: PONATINIB
     Dosage: 15 MG, 1?0?0?0
     Route: 065

REACTIONS (8)
  - General physical health deterioration [Recovering/Resolving]
  - Renal impairment [Recovering/Resolving]
  - Pleural effusion [Recovering/Resolving]
  - Condition aggravated [Recovering/Resolving]
  - Anaemia [Recovering/Resolving]
  - Constipation [Recovering/Resolving]
  - Abdominal pain lower [Recovering/Resolving]
  - Abdominal pain [Recovering/Resolving]

NARRATIVE: CASE EVENT DATE: 20210108
